FAERS Safety Report 8513291-2 (Version None)
Quarter: 2012Q3

REPORT INFORMATION
  Report Type: 
  Country: None (occurrence: None)
  Receive Date: 20120716
  Receipt Date: 20120713
  Transmission Date: 20120928
  Serious: Yes (Other)
  Sender: FDA-Public Use
  Company Number: US-ROCHE-1082351

PATIENT
  Sex: Female
  Weight: 93.07 kg

DRUGS (1)
  1. XELODA [Suspect]
     Indication: HEPATIC NEOPLASM MALIGNANT
     Route: 048
     Dates: start: 20120514

REACTIONS (5)
  - MEMORY IMPAIRMENT [None]
  - FALL [None]
  - SPEECH DISORDER [None]
  - SCIATICA [None]
  - BALANCE DISORDER [None]
